FAERS Safety Report 21074655 (Version 2)
Quarter: 2022Q3

REPORT INFORMATION
  Report Type: Report from Study
  Country: FR (occurrence: FR)
  Receive Date: 20220713
  Receipt Date: 20220831
  Transmission Date: 20221026
  Serious: Yes (Hospitalization)
  Sender: FDA-Public Use
  Company Number: FR-ROCHE-2664175

PATIENT
  Age: 70 Year
  Sex: Male
  Weight: 83 kg

DRUGS (7)
  1. VENETOCLAX [Suspect]
     Active Substance: VENETOCLAX
     Indication: Lymphoma
     Dosage: ON 20 APR 2020, LAST DOSE OF VENETOCLAX ADMINISTRATION BEFORE SAE
     Route: 048
     Dates: start: 20200323, end: 20200427
  2. ATEZOLIZUMAB [Suspect]
     Active Substance: ATEZOLIZUMAB
     Indication: Lymphoma
     Dosage: ON DAY 2 OF EACH 21-DAY CYCLE DURING 18
     Route: 065
     Dates: start: 20200317, end: 20200427
  3. OBINUTUZUMAB [Suspect]
     Active Substance: OBINUTUZUMAB
     Indication: Lymphoma
     Dosage: ON DAY 1, DAY 8 AND DAY 15 OF CYCLE 1 AND EACH DAY 1 FROM CYCLE 2 TO CYCLE 8
     Route: 065
     Dates: start: 20200316, end: 20200427
  4. BACTRIM [Concomitant]
     Active Substance: SULFAMETHOXAZOLE\TRIMETHOPRIM
     Indication: Product used for unknown indication
     Route: 065
  5. PANTOPRAZOLE [Concomitant]
     Active Substance: PANTOPRAZOLE
     Indication: Product used for unknown indication
     Route: 065
  6. SALICYLIC ACID [Concomitant]
     Active Substance: SALICYLIC ACID
     Indication: Product used for unknown indication
     Route: 065
  7. ALLOPURINOL [Concomitant]
     Active Substance: ALLOPURINOL
     Indication: Product used for unknown indication
     Route: 065

REACTIONS (1)
  - Chlamydial infection [Recovered/Resolved with Sequelae]

NARRATIVE: CASE EVENT DATE: 20200421
